FAERS Safety Report 21286646 (Version 1)
Quarter: 2022Q3

REPORT INFORMATION
  Report Type: Spontaneous
  Country: US (occurrence: US)
  Receive Date: 20220902
  Receipt Date: 20220902
  Transmission Date: 20221027
  Serious: Yes (Death, Other)
  Sender: FDA-Public Use
  Company Number: US-OTSUKA-2022_042622

PATIENT
  Age: 16 Year
  Sex: Male

DRUGS (6)
  1. BUSULFAN [Suspect]
     Active Substance: BUSULFAN
     Indication: Diffuse large B-cell lymphoma
     Dosage: 3600-4000 UM.MIN/DAY X 3 DAYS
     Route: 065
  2. CYCLOPHOSPHAMIDE [Suspect]
     Active Substance: CYCLOPHOSPHAMIDE
     Indication: Diffuse large B-cell lymphoma
     Dosage: 14.5 MG/KG, X 2 DAYS (DAYS -6 AND -5)
     Route: 065
  3. CYCLOPHOSPHAMIDE [Suspect]
     Active Substance: CYCLOPHOSPHAMIDE
     Indication: Graft versus host disease
     Dosage: 3300 MG/M2
     Route: 065
  4. FLUDARABINE [Suspect]
     Active Substance: FLUDARABINE PHOSPHATE
     Indication: Diffuse large B-cell lymphoma
     Dosage: 30 MG/M2 X 5 DAYS (DAYS -6 TO -2)
     Route: 065
  5. MYCOPHENOLATE MOFETIL [Concomitant]
     Active Substance: MYCOPHENOLATE MOFETIL
     Indication: Graft versus host disease
     Dosage: UNK; X 30 DAYS
     Route: 065
  6. TACROLIMUS [Concomitant]
     Active Substance: TACROLIMUS
     Indication: Graft versus host disease
     Dosage: UNK; X 6 MONTHS
     Route: 065

REACTIONS (12)
  - Renal tubular injury [Fatal]
  - Diffuse alveolar damage [Fatal]
  - Cardiac arrest [Fatal]
  - Coagulopathy [Fatal]
  - Vasculitis [Unknown]
  - Infection reactivation [Unknown]
  - Polyomavirus viraemia [Unknown]
  - Hepatic necrosis [Fatal]
  - Viral haemorrhagic cystitis [Fatal]
  - Multiple organ dysfunction syndrome [Fatal]
  - Venoocclusive liver disease [Fatal]
  - Product use in unapproved indication [Unknown]
